FAERS Safety Report 15080599 (Version 1)
Quarter: 2018Q2

REPORT INFORMATION
  Report Type: Spontaneous
  Country: DE (occurrence: DE)
  Receive Date: 20180628
  Receipt Date: 20180628
  Transmission Date: 20180711
  Serious: Yes (Other)
  Sender: FDA-Public Use
  Company Number: DE-BRISTOL-MYERS SQUIBB COMPANY-BMS-2018-058285

PATIENT
  Age: 53 Year

DRUGS (8)
  1. OPDIVO [Suspect]
     Active Substance: NIVOLUMAB
     Indication: METASTASES TO CENTRAL NERVOUS SYSTEM
     Dosage: UNK
     Route: 065
     Dates: start: 201705
  2. OPDIVO [Suspect]
     Active Substance: NIVOLUMAB
     Indication: METASTASES TO KIDNEY
     Route: 065
  3. YERVOY [Suspect]
     Active Substance: IPILIMUMAB
     Indication: NODULAR MELANOMA
     Dosage: UNK
     Route: 065
     Dates: start: 201701, end: 201704
  4. YERVOY [Suspect]
     Active Substance: IPILIMUMAB
     Indication: METASTASES TO CENTRAL NERVOUS SYSTEM
     Route: 065
  5. YERVOY [Suspect]
     Active Substance: IPILIMUMAB
     Indication: METASTASES TO LUNG
     Route: 065
  6. OPDIVO [Suspect]
     Active Substance: NIVOLUMAB
     Indication: METASTASES TO LUNG
     Route: 065
  7. OPDIVO [Suspect]
     Active Substance: NIVOLUMAB
     Indication: NODULAR MELANOMA
     Dosage: UNK
     Route: 065
     Dates: start: 201701, end: 201704
  8. YERVOY [Suspect]
     Active Substance: IPILIMUMAB
     Indication: METASTASES TO KIDNEY
     Route: 065

REACTIONS (9)
  - Pneumonitis [Unknown]
  - Lymphocytic hypophysitis [Unknown]
  - Autoimmune hepatitis [Unknown]
  - Pneumonia klebsiella [Unknown]
  - Bronchopulmonary aspergillosis [Recovering/Resolving]
  - Listeriosis [Unknown]
  - Metastases to central nervous system [Unknown]
  - Rash maculo-papular [Unknown]
  - Autoimmune uveitis [Unknown]

NARRATIVE: CASE EVENT DATE: 201703
